FAERS Safety Report 6560471-1 (Version None)
Quarter: 2010Q1

REPORT INFORMATION
  Report Type: 
  Country: None (occurrence: None)
  Receive Date: 20100129
  Receipt Date: 20090924
  Transmission Date: 20100710
  Serious: No
  Sender: FDA-Public Use
  Company Number: US-ABBOTT-09P-163-0598936-00

PATIENT
  Sex: Female
  Weight: 77.18 kg

DRUGS (2)
  1. HUMIRA [Suspect]
     Indication: CROHN'S DISEASE
     Dates: start: 20090915
  2. HUMIRA [Suspect]
     Dates: start: 20080201, end: 20090601

REACTIONS (3)
  - HAIR TEXTURE ABNORMAL [None]
  - OPEN WOUND [None]
  - OROPHARYNGEAL PAIN [None]
